FAERS Safety Report 16801927 (Version 1)
Quarter: 2019Q3

REPORT INFORMATION
  Report Type: Spontaneous
  Country: JP (occurrence: JP)
  Receive Date: 20190912
  Receipt Date: 20190912
  Transmission Date: 20191005
  Serious: Yes (Other)
  Sender: FDA-Public Use
  Company Number: JP-009507513-1909JPN000998J

PATIENT
  Age: 26 Year
  Sex: Female

DRUGS (2)
  1. AZANIN [Concomitant]
     Active Substance: AZATHIOPRINE
     Dosage: UNK
     Route: 065
  2. PREVYMIS [Suspect]
     Active Substance: LETERMOVIR
     Indication: ACUTE MYELOID LEUKAEMIA
     Dosage: 480 MILLIGRAM, QD
     Route: 048

REACTIONS (1)
  - Cytomegalovirus viraemia [Unknown]
